FAERS Safety Report 11479035 (Version 1)
Quarter: 2015Q3

REPORT INFORMATION
  Report Type: Report from Study
  Country: FR (occurrence: FR)
  Receive Date: 20150909
  Receipt Date: 20150909
  Transmission Date: 20151125
  Serious: No
  Sender: FDA-Public Use
  Company Number: FR-JAZZ-JPI-P-021798

PATIENT
  Sex: Female
  Weight: 74 kg

DRUGS (1)
  1. XYREM [Suspect]
     Active Substance: SODIUM OXYBATE
     Indication: PRODUCT USED FOR UNKNOWN INDICATION
     Dosage: 2 G, BID
     Route: 048
     Dates: start: 20120417

REACTIONS (7)
  - Tooth disorder [Unknown]
  - Muscle spasms [Unknown]
  - Weight increased [Unknown]
  - Skin hypertrophy [Unknown]
  - Urinary incontinence [Unknown]
  - Dyspnoea [Unknown]
  - Inflammation [Unknown]

NARRATIVE: CASE EVENT DATE: 2012
